FAERS Safety Report 19920098 (Version 1)
Quarter: 2021Q4

REPORT INFORMATION
  Report Type: Spontaneous
  Country: DE (occurrence: RS)
  Receive Date: 20211005
  Receipt Date: 20211005
  Transmission Date: 20220303
  Serious: Yes (Other)
  Sender: FDA-Public Use
  Company Number: RS-MERCK HEALTHCARE KGAA-9268388

PATIENT
  Age: 75 Year
  Sex: Male

DRUGS (2)
  1. ERBITUX [Suspect]
     Active Substance: CETUXIMAB
     Indication: Laryngeal cancer
     Dosage: 400 MG/M2, UNKNOWN
     Route: 065
  2. ERBITUX [Suspect]
     Active Substance: CETUXIMAB
     Dosage: 250 MG/M2, UNKNOWN
     Route: 065

REACTIONS (5)
  - Laryngeal oedema [Unknown]
  - Skin toxicity [Unknown]
  - Weight decreased [Unknown]
  - Mucosal inflammation [Unknown]
  - Paronychia [Unknown]
